FAERS Safety Report 6863206-8 (Version None)
Quarter: 2010Q3

REPORT INFORMATION
  Report Type: 
  Country: None (occurrence: None)
  Receive Date: 20100721
  Receipt Date: 20100712
  Transmission Date: 20110219
  Serious: Yes (Hospitalization, Other)
  Sender: FDA-Public Use
  Company Number: US-ABBOTT-10P-163-0656999-00

PATIENT
  Sex: Male
  Weight: 45.4 kg

DRUGS (2)
  1. HUMIRA [Suspect]
     Indication: CROHN'S DISEASE
     Dosage: 160 MG ONCE - LOADING DOSE
     Route: 058
     Dates: start: 20100622, end: 20100622
  2. POTASSIUM CHLORIDE [Concomitant]
     Indication: PRODUCT USED FOR UNKNOWN INDICATION

REACTIONS (4)
  - ABDOMINAL ADHESIONS [None]
  - ABDOMINAL PAIN [None]
  - FATIGUE [None]
  - INTESTINAL OBSTRUCTION [None]
